FAERS Safety Report 19401455 (Version 1)
Quarter: 2021Q2

REPORT INFORMATION
  Report Type: Spontaneous
  Country: AU (occurrence: NL)
  Receive Date: 20210611
  Receipt Date: 20210611
  Transmission Date: 20210717
  Serious: Yes (Life-Threatening, Other)
  Sender: FDA-Public Use
  Company Number: AU-TWI PHARMACEUTICAL, INC-2021SCTW000041

PATIENT

DRUGS (1)
  1. NIFEDIPINE EXTENDED?RELEASE TABLETS USP [Suspect]
     Active Substance: NIFEDIPINE
     Indication: PRODUCT USED FOR UNKNOWN INDICATION
     Dosage: 90 MG
     Route: 065

REACTIONS (4)
  - Cardiac arrest [Recovering/Resolving]
  - Accidental overdose [Unknown]
  - Cardiogenic shock [Recovered/Resolved]
  - Hypotension [Recovering/Resolving]
